FAERS Safety Report 16532622 (Version 1)
Quarter: 2019Q3

REPORT INFORMATION
  Report Type: Spontaneous
  Country: US (occurrence: US)
  Receive Date: 20190705
  Receipt Date: 20190705
  Transmission Date: 20191004
  Serious: No
  Sender: FDA-Public Use
  Company Number: US-TEVA-2019-US-1071611

PATIENT
  Sex: Male

DRUGS (1)
  1. ACTAVIS PERMETHRIN [Suspect]
     Active Substance: PERMETHRIN
     Indication: ACARODERMATITIS
     Dates: start: 2019

REACTIONS (3)
  - Drug ineffective [Unknown]
  - Product quality issue [Unknown]
  - Patient dissatisfaction with treatment [Unknown]
